FAERS Safety Report 4446011-1 (Version None)
Quarter: 2004Q3

REPORT INFORMATION
  Report Type: 
  Country: None (occurrence: None)
  Receive Date: 20040910
  Receipt Date: 20040903
  Transmission Date: 20050211
  Serious: Yes (Other)
  Sender: FDA-Public Use
  Company Number: US-BRISTOL-MYERS SQUIBB COMPANY-12692380

PATIENT
  Age: 69 Year
  Sex: Male
  Weight: 77 kg

DRUGS (9)
  1. ERBITUX [Suspect]
     Indication: COLON CANCER
     Route: 042
  2. TYLENOL [Concomitant]
     Indication: PREMEDICATION
  3. OXALIPLATIN [Concomitant]
     Route: 042
  4. CLARINEX [Concomitant]
  5. ASPIRIN [Concomitant]
  6. COUMADIN [Concomitant]
     Dates: start: 20040604
  7. AMBIEN [Concomitant]
  8. LOMOTIL [Concomitant]
  9. PHENERGAN HCL [Concomitant]
     Route: 054

REACTIONS (2)
  - HAEMORRHAGE [None]
  - SKIN ULCER [None]
